FAERS Safety Report 6223694-7 (Version None)
Quarter: 2009Q2

REPORT INFORMATION
  Report Type: 
  Country: None (occurrence: None)
  Receive Date: 20090611
  Receipt Date: 20090325
  Transmission Date: 20091009
  Serious: No
  Sender: FDA-Public Use
  Company Number: US-ABBOTT-08P-163-0487431-00

PATIENT
  Sex: Female
  Weight: 90.8 kg

DRUGS (4)
  1. HUMIRA [Suspect]
     Indication: PSORIASIS
     Route: 058
     Dates: start: 20080804, end: 20081001
  2. HUMIRA [Suspect]
     Route: 058
     Dates: start: 20081110
  3. XANAX [Concomitant]
     Indication: DRUG USE FOR UNKNOWN INDICATION
     Dosage: AS NEED MEDICATION
  4. AMBIEN [Concomitant]
     Indication: INSOMNIA
     Dosage: 10MG AS NEEDED FOR SLEEP

REACTIONS (7)
  - FUNGAL INFECTION [None]
  - MALAISE [None]
  - NASOPHARYNGITIS [None]
  - OPEN WOUND [None]
  - PRURITUS [None]
  - RASH GENERALISED [None]
  - URTICARIA [None]
